FAERS Safety Report 16699160 (Version 1)
Quarter: 2019Q3

REPORT INFORMATION
  Report Type: Spontaneous
  Country: US (occurrence: US)
  Receive Date: 20190813
  Receipt Date: 20190813
  Transmission Date: 20191004
  Serious: No
  Sender: FDA-Public Use
  Company Number: US-PERRIGO-19US006675

PATIENT
  Age: 43 Year
  Sex: Male
  Weight: 77.1 kg

DRUGS (2)
  1. LORATADINE. [Suspect]
     Active Substance: LORATADINE
     Dosage: 10 MG, SINGLE
     Route: 048
     Dates: start: 20190525, end: 20190525
  2. LORATADINE. [Suspect]
     Active Substance: LORATADINE
     Indication: SEASONAL ALLERGY
     Dosage: 1/2 TABLET TO 10 MG, QD
     Route: 048
     Dates: start: 2017, end: 20190524

REACTIONS (5)
  - Underdose [Unknown]
  - Dizziness [Recovered/Resolved]
  - Vertigo [Recovered/Resolved]
  - Expired product administered [Recovered/Resolved]
  - Wrong technique in product usage process [Unknown]

NARRATIVE: CASE EVENT DATE: 2017
